FAERS Safety Report 4852777-9 (Version None)
Quarter: 2005Q4

REPORT INFORMATION
  Report Type: 
  Country: None (occurrence: None)
  Receive Date: 20051125
  Receipt Date: 20040827
  Transmission Date: 20060501
  Serious: Yes (Other)
  Sender: FDA-Public Use
  Company Number: 800139

PATIENT
  Age: 54 Year
  Sex: Male
  Weight: 112.49 kg

DRUGS (1)
  1. DIANEAL [Suspect]
     Indication: PERITONEAL DIALYSIS
     Dosage: IP
     Route: 033
     Dates: start: 20040818, end: 20040818

REACTIONS (3)
  - ABDOMINAL PAIN [None]
  - KLEBSIELLA INFECTION [None]
  - PERITONITIS [None]
